FAERS Safety Report 9483736 (Version 1)
Quarter: 2013Q3

REPORT INFORMATION
  Report Type: Spontaneous
  Country: CA (occurrence: CA)
  Receive Date: 20130828
  Receipt Date: 20130828
  Transmission Date: 20140515
  Serious: Yes (Hospitalization)
  Sender: FDA-Public Use
  Company Number: CA-AMGEN-KDL320413

PATIENT
  Age: 61 Year
  Sex: Female

DRUGS (4)
  1. ENBREL [Suspect]
     Indication: RHEUMATOID ARTHRITIS
     Dosage: UNK UNK, 2 TIMES/WK
     Route: 058
     Dates: start: 20020423
  2. HYDROXYCHLOROQUINE SULFATE [Concomitant]
     Dosage: UNK UNK, UNK
  3. ARTHOTEC [Concomitant]
     Dosage: UNK UNK, UNK
  4. LEVOTHRYROXINE SODIUM [Concomitant]
     Dosage: .125 ?G, UNK

REACTIONS (2)
  - Thyroid cancer [Unknown]
  - Metastases to lymph nodes [Unknown]
